FAERS Safety Report 6579251-6 (Version None)
Quarter: 2010Q1

REPORT INFORMATION
  Report Type: 
  Country: None (occurrence: None)
  Receive Date: 20100212
  Receipt Date: 20100202
  Transmission Date: 20100710
  Serious: Yes (Other)
  Sender: FDA-Public Use
  Company Number: DE-AMGEN-US392110

PATIENT
  Age: 9 Year
  Sex: Male

DRUGS (1)
  1. ENBREL [Suspect]
     Indication: JUVENILE ARTHRITIS
     Route: 058
     Dates: start: 20091022, end: 20100126

REACTIONS (4)
  - AUTOIMMUNE DISORDER [None]
  - OTITIS MEDIA [None]
  - STREPTOCOCCAL INFECTION [None]
  - TOURETTE'S DISORDER [None]
